FAERS Safety Report 20846046 (Version 2)
Quarter: 2022Q2

REPORT INFORMATION
  Report Type: Report from Study
  Country: TW (occurrence: TW)
  Receive Date: 20220518
  Receipt Date: 20220523
  Transmission Date: 20220720
  Serious: Yes (Hospitalization)
  Sender: FDA-Public Use
  Company Number: TW-ONO-2022TW012685

PATIENT
  Age: 75 Year
  Sex: Male
  Weight: 58.9 kg

DRUGS (4)
  1. IPILIMUMAB [Suspect]
     Active Substance: IPILIMUMAB
     Indication: Gastric cancer
     Route: 042
     Dates: start: 20220427, end: 20220427
  2. GIMERACIL\OTERACIL\TEGAFUR [Suspect]
     Active Substance: GIMERACIL\OTERACIL\TEGAFUR
     Indication: Gastric cancer
     Dosage: 60 MG/M2
     Route: 048
     Dates: start: 20220427, end: 20220503
  3. GIMERACIL\OTERACIL\TEGAFUR [Suspect]
     Active Substance: GIMERACIL\OTERACIL\TEGAFUR
     Route: 048
     Dates: start: 20220428, end: 20220504
  4. OXALIPLATIN [Suspect]
     Active Substance: OXALIPLATIN
     Indication: Gastric cancer
     Dosage: 213.2 MG/M2
     Route: 042
     Dates: start: 20220427, end: 20220427

REACTIONS (1)
  - Blood creatinine increased [Not Recovered/Not Resolved]

NARRATIVE: CASE EVENT DATE: 20220508
